FAERS Safety Report 6635260-X (Version None)
Quarter: 2010Q1

REPORT INFORMATION
  Report Type: 
  Country: None (occurrence: None)
  Receive Date: 20100315
  Receipt Date: 20100311
  Transmission Date: 20100710
  Serious: Yes (Life-Threatening, Hospitalization, Other)
  Sender: FDA-Public Use
  Company Number: DE-SANOFI-AVENTIS-2010SA011331

PATIENT
  Age: 45 Year
  Sex: Female
  Weight: 60 kg

DRUGS (6)
  1. MULTAQ [Suspect]
     Indication: ATRIAL FIBRILLATION
     Route: 048
     Dates: start: 20100112, end: 20100116
  2. MULTAQ [Suspect]
     Route: 048
     Dates: start: 20100112, end: 20100116
  3. METOPROLOL TARTRATE [Concomitant]
     Indication: PROPHYLAXIS
     Dosage: DOSAGE: 1/2-0-0
     Route: 048
  4. DIGOXIN [Concomitant]
     Indication: PROPHYLAXIS
     Route: 048
  5. VERAPAMIL [Concomitant]
     Indication: PROPHYLAXIS
     Route: 065
  6. PHENPROCOUMON [Concomitant]
     Indication: DRUG USE FOR UNKNOWN INDICATION
     Dosage: DOSAGE: AFTER INR
     Route: 065
     Dates: start: 20100116

REACTIONS (3)
  - ARRHYTHMIA [None]
  - ATRIAL FIBRILLATION [None]
  - ATRIAL FLUTTER [None]
